FAERS Safety Report 23052712 (Version 1)
Quarter: 2023Q4

REPORT INFORMATION
  Report Type: Spontaneous
  Country: US (occurrence: US)
  Receive Date: 20231011
  Receipt Date: 20231011
  Transmission Date: 20240110
  Serious: No
  Sender: FDA-Public Use
  Company Number: US-SA-SAC20231009000223

PATIENT
  Age: 63 Year
  Sex: Female

DRUGS (2)
  1. KEVZARA [Suspect]
     Active Substance: SARILUMAB
     Indication: Cervical radiculopathy
     Dosage: 200 MG, QOW
     Route: 058
     Dates: start: 202309
  2. KEVZARA [Suspect]
     Active Substance: SARILUMAB
     Indication: Rheumatoid arthritis

REACTIONS (6)
  - Constipation [Unknown]
  - Sinusitis [Unknown]
  - Infection [Unknown]
  - Hyperhidrosis [Unknown]
  - Headache [Unknown]
  - Product use in unapproved indication [Unknown]
